FAERS Safety Report 20513768 (Version 1)
Quarter: 2022Q1

REPORT INFORMATION
  Report Type: Spontaneous
  Country: US (occurrence: US)
  Receive Date: 20220224
  Receipt Date: 20220224
  Transmission Date: 20220423
  Serious: No
  Sender: FDA-Public Use
  Company Number: US-AMNEAL PHARMACEUTICALS-2021-AMRX-02227

PATIENT
  Age: 67 Year
  Sex: Female

DRUGS (8)
  1. RYTARY [Suspect]
     Active Substance: CARBIDOPA\LEVODOPA
     Indication: Parkinson^s disease
     Dosage: 23.75/95 MG, 2 CAPSULES, 3X/DAY
     Route: 048
     Dates: start: 20210601, end: 20210604
  2. RYTARY [Suspect]
     Active Substance: CARBIDOPA\LEVODOPA
     Dosage: 23.75/95 MG, 3 CAPSULES AT 6AM, 2.00PM, 6.00PM AND 2 PILLS AT 10AM
     Route: 048
     Dates: start: 20210604, end: 20210604
  3. RYTARY [Suspect]
     Active Substance: CARBIDOPA\LEVODOPA
     Dosage: 23.75/95 MG, 3 CAPSULES, 4X/DAY
     Route: 048
     Dates: start: 20210605, end: 20210609
  4. RYTARY [Suspect]
     Active Substance: CARBIDOPA\LEVODOPA
     Dosage: 36.25/145MG 2 CAPSULE AT 6PM
     Route: 048
     Dates: start: 20210609, end: 20210609
  5. RYTARY [Suspect]
     Active Substance: CARBIDOPA\LEVODOPA
     Dosage: 36.25/145MG, 2 CAPSULES AT 6AM AND 3 CAPSULES AT 10 AM, 2PM AND 6PM
     Route: 048
     Dates: start: 20210610, end: 20210610
  6. RYTARY [Suspect]
     Active Substance: CARBIDOPA\LEVODOPA
     Dosage: 36.25/145MG, CAPSULES AT 6AM AND 3 CAPSULES AT 10 AM, 2PM AND 6PM
     Route: 048
     Dates: start: 20210611, end: 20210613
  7. RYTARY [Suspect]
     Active Substance: CARBIDOPA\LEVODOPA
     Dosage: 36.25/145MG, CAPSULES AT 6AM AND 3 CAPSULES AT 10 AM, 2PM AND 6PM
     Route: 048
     Dates: start: 20210614, end: 20210618
  8. CARBIDOPA\LEVODOPA [Concomitant]
     Active Substance: CARBIDOPA\LEVODOPA
     Indication: Parkinson^s disease
     Dosage: UNK, AS NEEDED
     Route: 065
     Dates: start: 20210614

REACTIONS (9)
  - Therapeutic response shortened [Unknown]
  - Chills [Not Recovered/Not Resolved]
  - Gait disturbance [Unknown]
  - Tremor [Unknown]
  - Cognitive disorder [Unknown]
  - Fatigue [Unknown]
  - On and off phenomenon [Unknown]
  - Musculoskeletal stiffness [Unknown]
  - Dyskinesia [Unknown]

NARRATIVE: CASE EVENT DATE: 20210601
